FAERS Safety Report 7442932-6 (Version None)
Quarter: 2011Q2

REPORT INFORMATION
  Report Type: 
  Country: None (occurrence: None)
  Receive Date: 20110428
  Receipt Date: 20110419
  Transmission Date: 20111010
  Serious: Yes (Hospitalization)
  Sender: FDA-Public Use
  Company Number: US-ASTRAZENECA-2011SE12212

PATIENT
  Sex: Female

DRUGS (3)
  1. SYMBICORT [Suspect]
     Indication: EMPHYSEMA
     Dosage: TOTAL DAILY DOSAGE 160/4.5 MCG, FREQUENCY UNKNOWN.
     Route: 055
  2. SYMBICORT [Suspect]
     Indication: CHRONIC OBSTRUCTIVE PULMONARY DISEASE
     Dosage: TOTAL DAILY DOSAGE 160/4.5 MCG, FREQUENCY UNKNOWN.
     Route: 055
  3. ADVAIR DISKUS 100/50 [Concomitant]

REACTIONS (1)
  - PNEUMONIA [None]
